FAERS Safety Report 7217419-6 (Version None)
Quarter: 2011Q1

REPORT INFORMATION
  Report Type: 
  Country: None (occurrence: None)
  Receive Date: 20110110
  Receipt Date: 20101231
  Transmission Date: 20110831
  Serious: Yes (Hospitalization, Other)
  Sender: FDA-Public Use
  Company Number: PHFR2010GB01396

PATIENT
  Sex: Female

DRUGS (3)
  1. CLOZARIL [Suspect]
     Indication: SCHIZOPHRENIA
     Dosage: UNK MG, UNK
     Route: 048
     Dates: start: 20050120
  2. CLOZARIL [Suspect]
     Dosage: UNK MG, UNK
     Dates: start: 20100728
  3. CLOZARIL [Suspect]
     Dosage: UNK MG, UNK
     Dates: start: 20100716, end: 20100717

REACTIONS (7)
  - HYPERTENSION [None]
  - DEHYDRATION [None]
  - RENAL IMPAIRMENT [None]
  - ELECTROCARDIOGRAM ABNORMAL [None]
  - UPPER RESPIRATORY TRACT INFECTION [None]
  - PYREXIA [None]
  - VIRAL INFECTION [None]
